FAERS Safety Report 8854619 (Version 1)
Quarter: 2012Q4

REPORT INFORMATION
  Report Type: 
  Country: US (occurrence: US)
  Receive Date: 20121023
  Receipt Date: 20121023
  Transmission Date: 20130627
  Serious: Yes (Hospitalization)
  Sender: FDA-Public Use
  Company Number: US-SANOFI-AVENTIS-2012SA075793

PATIENT
  Age: 28 Year
  Sex: Male

DRUGS (1)
  1. PETHIDINE HYDROCHLORIDE [Suspect]
     Indication: DRUG USE FOR UNKNOWN INDICATION
     Route: 013

REACTIONS (6)
  - Ischaemia [Recovered/Resolved]
  - Drug abuse [Recovered/Resolved]
  - Compartment syndrome [Unknown]
  - Tension [Unknown]
  - Pain [Unknown]
  - Sensory disturbance [Unknown]
